FAERS Safety Report 7271783-0 (Version None)
Quarter: 2011Q1

REPORT INFORMATION
  Report Type: 
  Country: None (occurrence: None)
  Receive Date: 20110126
  Receipt Date: 20110118
  Transmission Date: 20110831
  Serious: Yes (Other)
  Sender: FDA-Public Use
  Company Number: 2011SP002846

PATIENT
  Sex: Female

DRUGS (1)
  1. IMPLANON [Suspect]
     Indication: PRODUCT USED FOR UNKNOWN INDICATION
     Dosage: 1 DF

REACTIONS (4)
  - ABORTION SPONTANEOUS [None]
  - PREGNANCY WITH IMPLANT CONTRACEPTIVE [None]
  - DRUG EXPOSURE DURING PREGNANCY [None]
  - ABORTION [None]
